FAERS Safety Report 7962922-4 (Version None)
Quarter: 2011Q4

REPORT INFORMATION
  Report Type: 
  Country: None (occurrence: None)
  Receive Date: 20111207
  Receipt Date: 20111202
  Transmission Date: 20120403
  Serious: Yes (Death)
  Sender: FDA-Public Use
  Company Number: IT-GILEAD-2011-0047671

PATIENT
  Age: 93 Year
  Sex: Male

DRUGS (4)
  1. RAMIPRIL [Concomitant]
  2. RANOLAZINE [Suspect]
     Indication: PRODUCT USED FOR UNKNOWN INDICATION
     Dosage: 375 MG, BID
     Route: 048
     Dates: start: 20111101
  3. DILTIAZEM HCL [Concomitant]
  4. NICORANDIL [Concomitant]

REACTIONS (1)
  - DEATH [None]
